FAERS Safety Report 7937203-5 (Version None)
Quarter: 2011Q4

REPORT INFORMATION
  Report Type: 
  Country: None (occurrence: None)
  Receive Date: 20111123
  Receipt Date: 20110801
  Transmission Date: 20120403
  Serious: Yes (Hospitalization)
  Sender: FDA-Public Use
  Company Number: US-GLAXOSMITHKLINE-A0939954A

PATIENT
  Age: 66 Year
  Sex: Female
  Weight: 50 kg

DRUGS (3)
  1. PACLITAXEL [Suspect]
     Indication: THYROID CANCER
     Dosage: 80MGM2 WEEKLY
     Route: 042
     Dates: start: 20110603, end: 20111013
  2. RADIATION THERAPY [Suspect]
     Indication: THYROID CANCER
     Dosage: 2GY PER DAY
     Route: 061
  3. PAZOPANIB [Suspect]
     Indication: THYROID CANCER
     Dosage: 800MG PER DAY
     Route: 048
     Dates: start: 20110603, end: 20111019

REACTIONS (5)
  - WEIGHT DECREASED [None]
  - HAEMORRHOIDAL HAEMORRHAGE [None]
  - PALMAR-PLANTAR ERYTHRODYSAESTHESIA SYNDROME [None]
  - LYMPHOCYTE COUNT DECREASED [None]
  - OROPHARYNGEAL PAIN [None]
